FAERS Safety Report 5721559-8 (Version None)
Quarter: 2008Q2

REPORT INFORMATION
  Report Type: 
  Country: None (occurrence: None)
  Receive Date: 20080429
  Receipt Date: 20080201
  Transmission Date: 20081010
  Serious: No
  Sender: FDA-Public Use
  Company Number: US-ASTRAZENECA-2006UW24363

PATIENT
  Sex: Female
  Weight: 74.8 kg

DRUGS (3)
  1. NEXIUM [Suspect]
     Indication: HIATUS HERNIA
     Route: 048
     Dates: start: 20060501
  2. FOLIC ACID [Concomitant]
  3. EQUAILACTIN [Concomitant]
     Indication: GASTROINTESTINAL DISORDER

REACTIONS (4)
  - ABNORMAL FAECES [None]
  - DIARRHOEA [None]
  - ERUCTATION [None]
  - FLATULENCE [None]
